FAERS Safety Report 6150853-4 (Version None)
Quarter: 2009Q2

REPORT INFORMATION
  Report Type: 
  Country: None (occurrence: None)
  Receive Date: 20090408
  Receipt Date: 20090401
  Transmission Date: 20091009
  Serious: Yes (Hospitalization)
  Sender: FDA-Public Use
  Company Number: DSA_33444_2009

PATIENT
  Sex: Male

DRUGS (10)
  1. ATIVAN [Suspect]
     Indication: DRUG USE FOR UNKNOWN INDICATION
     Dosage: (DF)
  2. BRIVANIB ALANINATE [Suspect]
     Indication: HEPATIC CANCER METASTATIC
     Dosage: (800 MG QD ORAL) ; (600 MG QD)
     Route: 048
     Dates: start: 20080910, end: 20081014
  3. BACLOFEN [Suspect]
     Indication: DRUG USE FOR UNKNOWN INDICATION
     Dosage: (10 MG 1X/8 HOURS)
  4. THORAZINE [Suspect]
     Indication: DRUG USE FOR UNKNOWN INDICATION
     Dosage: (25 MG 1X/8 HOURS)
  5. MARINOL [Suspect]
     Indication: DRUG USE FOR UNKNOWN INDICATION
     Dosage: (2.5 MG BID)
  6. MIORPHINE [Concomitant]
  7. SUCRALFATE [Concomitant]
  8. INTERFERON ALFA [Concomitant]
  9. LOSARTAN POTASSIUM [Concomitant]
  10. ESOMEPRAZOLE [Concomitant]

REACTIONS (10)
  - ALANINE AMINOTRANSFERASE INCREASED [None]
  - ANTI-THYROID ANTIBODY POSITIVE [None]
  - ASPARTATE AMINOTRANSFERASE INCREASED [None]
  - BLOOD ALKALINE PHOSPHATASE INCREASED [None]
  - BLOOD CREATININE DECREASED [None]
  - BLOOD UREA DECREASED [None]
  - CONFUSIONAL STATE [None]
  - HYPOTHYROIDISM [None]
  - STAPHYLOCOCCAL ABSCESS [None]
  - SUBCUTANEOUS ABSCESS [None]
